FAERS Safety Report 25471350 (Version 4)
Quarter: 2025Q4

REPORT INFORMATION
  Report Type: Spontaneous
  Country: EU (occurrence: EU)
  Receive Date: 20250624
  Receipt Date: 20251020
  Transmission Date: 20260117
  Serious: Yes (Death, Hospitalization)
  Sender: SANDOZ
  Company Number: EU-JNJFOC-20200735431

PATIENT
  Age: 55 Year
  Sex: Female
  Weight: 81.3 kg

DRUGS (24)
  1. BORTEZOMIB [Suspect]
     Active Substance: BORTEZOMIB
     Indication: Plasma cell myeloma
     Dosage: 1 UG/M2
     Route: 065
     Dates: start: 20200423, end: 20200426
  2. CISPLATIN [Suspect]
     Active Substance: CISPLATIN
     Indication: Plasma cell myeloma
     Dosage: 10 MG/M2, QD
     Route: 065
     Dates: start: 20200423, end: 20200426
  3. CISPLATIN [Suspect]
     Active Substance: CISPLATIN
     Indication: Plasma cell myeloma
  4. CYCLOPHOSPHAMIDE [Suspect]
     Active Substance: CYCLOPHOSPHAMIDE
     Dosage: 400 MG/M2, QD ((INJECTION FOR INFUSION))
     Route: 042
     Dates: start: 20200423, end: 20200426
  5. CYCLOPHOSPHAMIDE [Suspect]
     Active Substance: CYCLOPHOSPHAMIDE
     Dosage: 400 MG/M2, QD ((INJECTION FOR INFUSION))
     Route: 042
     Dates: start: 20200423, end: 20200426
  6. CYCLOPHOSPHAMIDE [Suspect]
     Active Substance: CYCLOPHOSPHAMIDE
     Indication: Plasma cell myeloma
     Dosage: 561 MG, QD (INJECTION FOR INFUSION)
     Route: 042
     Dates: start: 20181121, end: 20181123
  7. CYCLOPHOSPHAMIDE [Suspect]
     Active Substance: CYCLOPHOSPHAMIDE
     Dosage: 561 MG, QD (INJECTION FOR INFUSION)
     Route: 042
     Dates: start: 20181121, end: 20181123
  8. DOXORUBICIN HYDROCHLORIDE [Suspect]
     Active Substance: DOXORUBICIN HYDROCHLORIDE
     Indication: Plasma cell myeloma
     Dosage: 10 MG, QD
     Route: 065
     Dates: start: 20200423, end: 20200426
  9. DEXAMETHASONE [Suspect]
     Active Substance: DEXAMETHASONE
     Indication: Plasma cell myeloma
     Dosage: 40 MG, QD
     Route: 065
     Dates: start: 20200423, end: 20200426
  10. DOXORUBICIN [Suspect]
     Active Substance: DOXORUBICIN
     Indication: Plasma cell myeloma
     Dosage: 10 MG, QD
     Route: 065
     Dates: start: 20200423, end: 20200426
  11. ETOPOSIDE [Suspect]
     Active Substance: ETOPOSIDE
     Indication: Plasma cell myeloma
     Dosage: UNK
     Route: 065
     Dates: start: 20200423, end: 20200426
  12. FLUDARABINE [Suspect]
     Active Substance: FLUDARABINE PHOSPHATE
     Indication: Plasma cell myeloma
     Dosage: 56.1 MG, QD (INJECTION FOR INFUSION)
     Route: 042
     Dates: start: 20181121, end: 20181123
  13. THALIDOMIDE [Suspect]
     Active Substance: THALIDOMIDE
     Indication: Plasma cell myeloma
     Dosage: 100 MG, QD
     Route: 048
     Dates: start: 20200423, end: 20200426
  14. VELCADE [Suspect]
     Active Substance: BORTEZOMIB
     Indication: Plasma cell myeloma
     Dosage: 1 UG/M2 (ONCE IN 4 DAYS) MG/M2
     Route: 065
     Dates: start: 20200423, end: 20200426
  15. VELCADE [Suspect]
     Active Substance: BORTEZOMIB
     Indication: Refractory cancer
     Dosage: UNK
     Route: 065
  16. VELCADE [Suspect]
     Active Substance: BORTEZOMIB
     Indication: Plasma cell myeloma recurrent
  17. COTRIMOXAZOLE [Concomitant]
     Active Substance: SULFAMETHOXAZOLE\TRIMETHOPRIM
     Indication: Infection prophylaxis
     Dosage: 3 DF, QW
     Route: 065
     Dates: start: 20060710, end: 20200424
  18. SULFAMETHOXAZOLE\TRIMETHOPRIM [Concomitant]
     Active Substance: SULFAMETHOXAZOLE\TRIMETHOPRIM
     Indication: Infection prophylaxis
     Dosage: 3 DF, QW
     Route: 065
     Dates: start: 20060710, end: 20200424
  19. NEUPOGEN [Concomitant]
     Active Substance: FILGRASTIM
     Indication: Product used for unknown indication
     Dosage: 30 MIU E
     Route: 065
     Dates: start: 20200317, end: 20200319
  20. NEUPOGEN [Concomitant]
     Active Substance: FILGRASTIM
     Dosage: 30 MIU E
     Route: 065
     Dates: start: 20200402, end: 20200404
  21. NEUPOGEN [Concomitant]
     Active Substance: FILGRASTIM
     Dosage: 30 MIU E
     Route: 065
     Dates: start: 20200423, end: 20200423
  22. NEUPOGEN [Concomitant]
     Active Substance: FILGRASTIM
     Dosage: 48 MIU
     Route: 065
     Dates: start: 20200422, end: 20200422
  23. POTASSIUM CHLORIDE [Concomitant]
     Active Substance: POTASSIUM CHLORIDE
     Indication: Hypokalaemia
     Dosage: UNK
     Route: 065
     Dates: start: 20200427, end: 20200427
  24. TRIMETHOPRIM [Concomitant]
     Active Substance: TRIMETHOPRIM
     Indication: Infection prophylaxis
     Dosage: 960 MG, QW
     Route: 048
     Dates: start: 20060710, end: 20200424

REACTIONS (3)
  - Pneumonia [Fatal]
  - Septic shock [Fatal]
  - Off label use [Unknown]

NARRATIVE: CASE EVENT DATE: 20200427
